FAERS Safety Report 21396328 (Version 1)
Quarter: 2022Q3

REPORT INFORMATION
  Report Type: Spontaneous
  Country: US (occurrence: None)
  Receive Date: 20220928
  Receipt Date: 20220928
  Transmission Date: 20221027
  Serious: Yes (Hospitalization)
  Sender: FDA-Public Use
  Company Number: None

PATIENT
  Age: 67 Year
  Sex: Male

DRUGS (1)
  1. CAPECITABINE [Suspect]
     Active Substance: CAPECITABINE
     Dosage: FREQUENCY; OTHER
     Route: 050

REACTIONS (4)
  - Seizure [None]
  - Neuropathy peripheral [None]
  - Metastases to central nervous system [None]
  - Paraesthesia [None]

NARRATIVE: CASE EVENT DATE: 20220928
